FAERS Safety Report 13074996 (Version 1)
Quarter: 2016Q4

REPORT INFORMATION
  Report Type: Spontaneous
  Country: US (occurrence: US)
  Receive Date: 20161230
  Receipt Date: 20161230
  Transmission Date: 20170207
  Serious: No
  Sender: FDA-Public Use
  Company Number: US-BAYER-2016-246330

PATIENT
  Age: 81 Year
  Sex: Male
  Weight: 72 kg

DRUGS (1)
  1. MIRALAX [Suspect]
     Active Substance: POLYETHYLENE GLYCOL 3350
     Indication: COLONOSCOPY
     Dosage: 238 G, UNK (HAS NOT TAKEN DOSE YET)
     Route: 048

REACTIONS (2)
  - Intercepted drug prescribing error [Unknown]
  - Circumstance or information capable of leading to medication error [None]
